FAERS Safety Report 24529231 (Version 5)
Quarter: 2024Q4

REPORT INFORMATION
  Report Type: Spontaneous
  Country: US (occurrence: US)
  Receive Date: 20241021
  Receipt Date: 20241230
  Transmission Date: 20250115
  Serious: Yes (Other)
  Sender: PFIZER
  Company Number: US-PFIZER INC-PV202400135337

PATIENT
  Age: 63 Year
  Sex: Female
  Weight: 54.422 kg

DRUGS (4)
  1. ESTRING [Suspect]
     Active Substance: ESTRADIOL
     Indication: Hormone replacement therapy
     Dosage: 7.5 UG, EVERY 3 MONTHS
     Route: 067
     Dates: start: 202307, end: 20240131
  2. ESTRING [Suspect]
     Active Substance: ESTRADIOL
     Indication: Oestrogen replacement therapy
  3. VALSARTAN [Concomitant]
     Active Substance: VALSARTAN
     Indication: Hypertension
     Dosage: 60 MG, DAILY
  4. THYROID [Concomitant]
     Active Substance: LEVOTHYROXINE\LIOTHYRONINE
     Indication: Hypothyroidism
     Dosage: 0.112 UG, DAILY

REACTIONS (5)
  - Postmenopausal haemorrhage [Recovered/Resolved]
  - Product size issue [Recovered/Resolved]
  - Pain [Unknown]
  - Coital bleeding [Unknown]
  - Device difficult to use [Unknown]

NARRATIVE: CASE EVENT DATE: 20240131
